FAERS Safety Report 6967722-X (Version None)
Quarter: 2010Q3

REPORT INFORMATION
  Report Type: 
  Country: None (occurrence: None)
  Receive Date: 20100907
  Receipt Date: 20100826
  Transmission Date: 20110219
  Serious: Yes (Other)
  Sender: FDA-Public Use
  Company Number: US-ALEXION-A201000728

PATIENT

DRUGS (5)
  1. SOLIRIS [Suspect]
     Indication: PAROXYSMAL NOCTURNAL HAEMOGLOBINURIA
     Dosage: UNK
     Route: 042
  2. GABAPENTIN [Concomitant]
     Dosage: 400 MG, TID
     Route: 048
  3. MOTRIN [Concomitant]
     Dosage: 400 MG, PRN Q4H
     Route: 048
  4. SYNTHROID [Concomitant]
     Dosage: 50 UG, QD
     Route: 048
  5. TRAMADOL HCL [Concomitant]
     Dosage: 50 MG, PRN Q4H
     Route: 048

REACTIONS (3)
  - FALL [None]
  - HAEMATOMA [None]
  - PLATELET COUNT DECREASED [None]
